FAERS Safety Report 5874988-6 (Version None)
Quarter: 2008Q3

REPORT INFORMATION
  Report Type: 
  Country: None (occurrence: None)
  Receive Date: 20080909
  Receipt Date: 20080828
  Transmission Date: 20090109
  Serious: Yes (Other)
  Sender: FDA-Public Use
  Company Number: US-WYE-H05778908

PATIENT
  Age: 37 Year
  Sex: Female
  Weight: 79.45 kg

DRUGS (2)
  1. PRISTIQ [Suspect]
     Indication: DEPRESSION
     Route: 048
     Dates: start: 20080728, end: 20080818
  2. DIOVAN HCT [Concomitant]
     Indication: HYPERTENSION

REACTIONS (7)
  - ABNORMAL BEHAVIOUR [None]
  - ABNORMAL DREAMS [None]
  - AGGRESSION [None]
  - DRUG INEFFECTIVE [None]
  - IRRITABILITY [None]
  - MOOD ALTERED [None]
  - MORBID THOUGHTS [None]
